FAERS Safety Report 5678045-3 (Version None)
Quarter: 2008Q1

REPORT INFORMATION
  Report Type: 
  Country: None (occurrence: None)
  Receive Date: 20080324
  Receipt Date: 20080324
  Transmission Date: 20080703
  Serious: Yes (Life-Threatening, Hospitalization, Other)
  Sender: FDA-Public Use
  Company Number: None

PATIENT
  Sex: Male

DRUGS (2)
  1. TORADOL [Suspect]
     Indication: PAIN
     Dosage: ORAL
     Route: 048
     Dates: start: 19970901
  2. TORADOL [Suspect]
     Indication: RIB FRACTURE
     Dosage: ORAL
     Route: 048
     Dates: start: 19970901

REACTIONS (2)
  - GASTRIC ULCER HAEMORRHAGE [None]
  - NO THERAPEUTIC RESPONSE [None]
